FAERS Safety Report 16149476 (Version 1)
Quarter: 2019Q2

REPORT INFORMATION
  Report Type: Spontaneous
  Country: CN (occurrence: CN)
  Receive Date: 20190402
  Receipt Date: 20190402
  Transmission Date: 20190711
  Serious: Yes (Death, Hospitalization, Other)
  Sender: FDA-Public Use
  Company Number: CN-009507513-1903CHN013240

PATIENT
  Age: 50 Year
  Sex: Male
  Weight: 65.2 kg

DRUGS (8)
  1. VANCOMYCIN HYDROCHLORIDE. [Suspect]
     Active Substance: VANCOMYCIN HYDROCHLORIDE
     Dosage: 500000 U, Q8H
     Route: 042
     Dates: start: 20190227, end: 20190304
  2. POLYMYXIN B SULFATE. [Suspect]
     Active Substance: POLYMYXIN B SULFATE
     Dosage: 750000 IU, Q12H
     Dates: start: 20190310, end: 201903
  3. CEFOPERAZONE SODIUM (+) SULBACTAM SODIUM [Suspect]
     Active Substance: CEFOPERAZONE SODIUM\SULBACTAM SODIUM
     Dosage: 3 GRAM, Q8H
     Dates: start: 20190304, end: 20190305
  4. VANCOMYCIN HYDROCHLORIDE. [Suspect]
     Active Substance: VANCOMYCIN HYDROCHLORIDE
     Dosage: 500000 U, Q8H
     Route: 042
     Dates: start: 20190320, end: 20190323
  5. POLYMYXIN B SULFATE. [Suspect]
     Active Substance: POLYMYXIN B SULFATE
     Dosage: 500000 IU, Q12H
     Dates: start: 20190304, end: 20190310
  6. CANCIDAS [Suspect]
     Active Substance: CASPOFUNGIN ACETATE
     Indication: INFECTION
     Dosage: 50 MILLIGRAM, QD
     Route: 041
     Dates: start: 20190227, end: 20190305
  7. CEFOPERAZONE SODIUM (+) SULBACTAM SODIUM [Suspect]
     Active Substance: CEFOPERAZONE SODIUM\SULBACTAM SODIUM
     Dosage: 3 GRAM, Q8H
     Dates: start: 20190311, end: 201903
  8. MEROPENEM. [Suspect]
     Active Substance: MEROPENEM
     Dosage: 1 GRAM, Q8H
     Dates: start: 20190227, end: 20190307

REACTIONS (1)
  - Sepsis [Fatal]

NARRATIVE: CASE EVENT DATE: 20190303
